FAERS Safety Report 25446350 (Version 1)
Quarter: 2025Q2

REPORT INFORMATION
  Report Type: Spontaneous
  Country: US (occurrence: US)
  Receive Date: 20250617
  Receipt Date: 20250617
  Transmission Date: 20250716
  Serious: Yes (Other)
  Sender: SANOFI AVENTIS
  Company Number: US-DialogSolutions-SAAVPROD-PI789553-C1

PATIENT
  Age: 45 Year
  Sex: Male

DRUGS (6)
  1. PLAVIX [Suspect]
     Active Substance: CLOPIDOGREL BISULFATE
     Indication: Deep vein thrombosis
  2. PLAVIX [Suspect]
     Active Substance: CLOPIDOGREL BISULFATE
     Indication: Cerebral infarction
  3. PLAVIX [Suspect]
     Active Substance: CLOPIDOGREL BISULFATE
     Indication: Embolic stroke
  4. APIXABAN [Suspect]
     Active Substance: APIXABAN
     Indication: Cerebral infarction
  5. APIXABAN [Suspect]
     Active Substance: APIXABAN
     Indication: Deep vein thrombosis
  6. APIXABAN [Suspect]
     Active Substance: APIXABAN
     Indication: Embolic stroke

REACTIONS (2)
  - Cerebral artery thrombosis [Unknown]
  - Therapeutic response decreased [Unknown]
